FAERS Safety Report 16686222 (Version 2)
Quarter: 2019Q3

REPORT INFORMATION
  Report Type: Spontaneous
  Country: US (occurrence: US)
  Receive Date: 20190809
  Receipt Date: 20190813
  Transmission Date: 20191004
  Serious: Yes (Other)
  Sender: FDA-Public Use
  Company Number: US-B.I. PHARMACEUTICALS,INC./RIDGEFIELD-2019-US-001187

PATIENT
  Sex: Female

DRUGS (1)
  1. SPIRIVA RESPIMAT [Suspect]
     Active Substance: TIOTROPIUM BROMIDE
     Indication: CHRONIC OBSTRUCTIVE PULMONARY DISEASE
     Dosage: TWO INHALATIONS DAILY
     Route: 055
     Dates: start: 2015

REACTIONS (6)
  - Deafness [Unknown]
  - Cataract [Unknown]
  - Chest pain [Unknown]
  - Cardiac failure [Unknown]
  - Neoplasm malignant [Unknown]
  - Glaucoma [Unknown]
